FAERS Safety Report 10021011 (Version 1)
Quarter: 2014Q1

REPORT INFORMATION
  Report Type: Spontaneous
  Country: US (occurrence: None)
  Receive Date: 20140318
  Receipt Date: 20140318
  Transmission Date: 20141002
  Serious: No
  Sender: FDA-Public Use
  Company Number: None

PATIENT
  Age: 59 Year
  Sex: Male
  Weight: 90.72 kg

DRUGS (17)
  1. LOSARTAN [Suspect]
     Indication: HYPERTENSION
     Dosage: 2 TABLETS
     Route: 048
     Dates: start: 20140122, end: 20140314
  2. PAXIL (PAROXETINE) [Concomitant]
  3. CRESTOR [Concomitant]
  4. IBUPROFEN [Concomitant]
  5. LORAZEPAM [Concomitant]
  6. CLARINEX [Concomitant]
  7. METOPROLOL [Concomitant]
  8. DIOVAN [Concomitant]
  9. COZAAR [Concomitant]
  10. MULTIVITAMIN [Concomitant]
  11. LOVAZA [Concomitant]
  12. FISH OIL [Concomitant]
  13. VITAMIN E [Concomitant]
  14. SAW PALMETTO/SELENIUM/LYCOPENE [Concomitant]
  15. CALCIUM/MAGNESIUM/ZINC [Concomitant]
  16. FIBER SUPPLEMENT [Concomitant]
  17. VITAMIN D [Concomitant]

REACTIONS (4)
  - Drug ineffective [None]
  - Dysgeusia [None]
  - Dry mouth [None]
  - Product shape issue [None]
